FAERS Safety Report 19309528 (Version 5)
Quarter: 2021Q2

REPORT INFORMATION
  Report Type: Spontaneous
  Country: IT (occurrence: IT)
  Receive Date: 20210525
  Receipt Date: 20210615
  Transmission Date: 20210717
  Serious: Yes (Other)
  Sender: FDA-Public Use
  Company Number: IT-CELLTRION INC.-2021IT006909

PATIENT

DRUGS (13)
  1. RITUXIMAB (UNKNOWN) [Suspect]
     Active Substance: RITUXIMAB
     Dosage: SECOND?LINE THERAPY (ACTION TAKEN: TREATMENT COMPLETED WITH MULTIPLE DELAYS)
     Route: 065
     Dates: end: 201712
  2. BENDAMUSTINE [Suspect]
     Active Substance: BENDAMUSTINE
     Indication: CHRONIC LYMPHOCYTIC LEUKAEMIA
     Dosage: UNK (SECOND?LINE THERAPY) (ACTION TAKEN: TREATMENT COMPLETED WITH MULTIPLE DELAYS)
     Route: 065
     Dates: start: 2017, end: 201712
  3. MITOXANTRONE [Suspect]
     Active Substance: MITOXANTRONE HYDROCHLORIDE
     Indication: CHRONIC LYMPHOCYTIC LEUKAEMIA
     Dosage: UNK
     Route: 065
  4. RITUXIMAB (UNKNOWN) [Suspect]
     Active Substance: RITUXIMAB
     Indication: CHRONIC LYMPHOCYTIC LEUKAEMIA RECURRENT
     Dosage: SECOND?LINE THERAPY (ACTION TAKEN: TREATMENT COMPLETED WITH MULTIPLE DELAYS)
     Route: 065
     Dates: start: 2017, end: 201712
  5. RITUXIMAB (UNKNOWN) [Suspect]
     Active Substance: RITUXIMAB
     Dosage: SECOND?LINE THERAPY (ACTION TAKEN: TREATMENT COMPLETED WITH MULTIPLE DELAYS)
     Route: 065
     Dates: end: 201712
  6. BENDAMUSTINE [Suspect]
     Active Substance: BENDAMUSTINE
     Indication: CHRONIC LYMPHOCYTIC LEUKAEMIA RECURRENT
  7. BENDAMUSTINE HYDROCHLORIDE. [Suspect]
     Active Substance: BENDAMUSTINE HYDROCHLORIDE
     Dosage: UNK (SECOND?LINE THERAPY); ACTION TAKEN: TREATMENT COMPLETED WITH MULTIPLE DELAYS
     Route: 065
     Dates: start: 2017, end: 201712
  8. RITUXIMAB (UNKNOWN) [Suspect]
     Active Substance: RITUXIMAB
     Dosage: UNK
     Route: 065
  9. RITUXIMAB (UNKNOWN) [Suspect]
     Active Substance: RITUXIMAB
     Dosage: UNK
     Route: 065
  10. FLUDARABINE [Suspect]
     Active Substance: FLUDARABINE PHOSPHATE
     Indication: CHRONIC LYMPHOCYTIC LEUKAEMIA
     Dosage: UNK
     Route: 065
  11. RITUXIMAB (UNKNOWN) [Suspect]
     Active Substance: RITUXIMAB
     Dosage: SECOND?LINE THERAPY (ACTION TAKEN: TREATMENT COMPLETED WITH MULTIPLE DELAYS)
     Route: 065
     Dates: end: 201712
  12. RITUXIMAB (UNKNOWN) [Suspect]
     Active Substance: RITUXIMAB
     Dosage: UNK
     Route: 065
  13. BENDAMUSTINE HYDROCHLORIDE. [Suspect]
     Active Substance: BENDAMUSTINE HYDROCHLORIDE
     Indication: CHRONIC LYMPHOCYTIC LEUKAEMIA RECURRENT
     Dosage: SECOND?LINE THERAPY
     Route: 065
     Dates: end: 201712

REACTIONS (5)
  - Chronic lymphocytic leukaemia [Unknown]
  - Treatment delayed [Unknown]
  - Haematotoxicity [Unknown]
  - Neutropenia [Unknown]
  - Therapy partial responder [Unknown]

NARRATIVE: CASE EVENT DATE: 2017
